FAERS Safety Report 12068146 (Version 1)
Quarter: 2016Q1

REPORT INFORMATION
  Report Type: Spontaneous
  Country: US (occurrence: US)
  Receive Date: 20160211
  Receipt Date: 20160211
  Transmission Date: 20160526
  Serious: No
  Sender: FDA-Public Use
  Company Number: US-SMITH AND NEPHEW, INC-2015SMT00368

PATIENT
  Age: 85 Year
  Sex: Female
  Weight: 74.83 kg

DRUGS (2)
  1. REGRANEX [Suspect]
     Active Substance: BECAPLERMIN
     Indication: DIABETIC ULCER
     Dosage: UNK UNK, 1X/DAY
     Route: 061
     Dates: start: 20150801, end: 20150901
  2. INSULIN (UNSPECIFIED) [Concomitant]
     Dosage: UNK

REACTIONS (2)
  - Incorrect drug administration duration [Unknown]
  - Application site infection [Recovering/Resolving]

NARRATIVE: CASE EVENT DATE: 20150801
